FAERS Safety Report 4979466-4 (Version None)
Quarter: 2006Q2

REPORT INFORMATION
  Report Type: 
  Country: None (occurrence: None)
  Receive Date: 20060421
  Receipt Date: 20060206
  Transmission Date: 20061013
  Serious: Yes (Other)
  Sender: FDA-Public Use
  Company Number: GBWYE370007FEB06

PATIENT
  Sex: Female
  Weight: 17.6 kg

DRUGS (3)
  1. ENBREL [Suspect]
     Indication: JUVENILE ARTHRITIS
     Dosage: 6.3 MG
     Route: 058
     Dates: start: 20030901, end: 20040801
  2. ONDANSETRON [Concomitant]
     Route: 048
     Dates: start: 20050901
  3. METHOTREXATE [Concomitant]
     Route: 058

REACTIONS (2)
  - CONDITION AGGRAVATED [None]
  - ECZEMA [None]
